FAERS Safety Report 14822507 (Version 1)
Quarter: 2020Q3

REPORT INFORMATION
  Report Type: Report from Study
  Country: US (occurrence: US)
  Receive Date: 20180427
  Receipt Date: 20180427
  Transmission Date: 20201105
  Serious: Yes (Hospitalization)
  Sender: FDA-Public Use
  Company Number: US-ASTRAZENECA-2018SE52953

PATIENT
  Age: 21071 Day
  Sex: Female

DRUGS (2)
  1. MEDI4736 [Suspect]
     Active Substance: DURVALUMAB
     Indication: ENDOMETRIAL CANCER
     Route: 042
     Dates: start: 20171208
  2. TREMELIMUMAB. [Suspect]
     Active Substance: TREMELIMUMAB
     Indication: ENDOMETRIAL CANCER
     Route: 042
     Dates: start: 20171208

REACTIONS (3)
  - Weight decreased [Unknown]
  - Lethargy [Recovering/Resolving]
  - Adrenal insufficiency [Unknown]

NARRATIVE: CASE EVENT DATE: 20180328
